FAERS Safety Report 24544653 (Version 1)
Quarter: 2024Q4

REPORT INFORMATION
  Report Type: Spontaneous
  Country: FR (occurrence: FR)
  Receive Date: 20241024
  Receipt Date: 20241024
  Transmission Date: 20250115
  Serious: Yes (Death, Hospitalization)
  Sender: MYLAN
  Company Number: FR-MYLANLABS-2023M1014724

PATIENT
  Age: 55 Year
  Sex: Female

DRUGS (2)
  1. GLICLAZIDE [Suspect]
     Active Substance: GLICLAZIDE
     Indication: Product used for unknown indication
     Dosage: 40 MILLIGRAM, PILLS; TWENTY-EIGHT PILLS WERE DISPENSED
     Route: 048
  2. FUROSEMIDE [Suspect]
     Active Substance: FUROSEMIDE
     Indication: Oedema peripheral
     Dosage: 40 MILLIGRAM
     Route: 065

REACTIONS (4)
  - Toxicity to various agents [Fatal]
  - Product dispensing error [Fatal]
  - Coma [Fatal]
  - Hypoglycaemia [Fatal]
